APPROVED DRUG PRODUCT: HYDRALAZINE HYDROCHLORIDE W/ HYDROCHLOROTHIAZIDE 100/50
Active Ingredient: HYDRALAZINE HYDROCHLORIDE; HYDROCHLOROTHIAZIDE
Strength: 100MG;50MG
Dosage Form/Route: CAPSULE;ORAL
Application: A088358 | Product #001
Applicant: IVAX PHARMACEUTICALS INC
Approved: Apr 10, 1984 | RLD: No | RS: No | Type: DISCN